FAERS Safety Report 20714374 (Version 1)
Quarter: 2022Q2

REPORT INFORMATION
  Report Type: Spontaneous
  Country: US (occurrence: US)
  Receive Date: 20220415
  Receipt Date: 20220415
  Transmission Date: 20220721
  Serious: No
  Sender: FDA-Public Use
  Company Number: US-PFIZER INC-2020190903

PATIENT
  Age: 64 Year

DRUGS (1)
  1. CHANTIX [Suspect]
     Active Substance: VARENICLINE TARTRATE
     Indication: Smoking cessation therapy
     Dosage: UNK, GOT OFF A LITTLE BIT THEN GOT BACK ON IT
     Dates: start: 20191019

REACTIONS (1)
  - Rotator cuff syndrome [Unknown]
